FAERS Safety Report 26113612 (Version 1)
Quarter: 2025Q4

REPORT INFORMATION
  Report Type: Spontaneous
  Country: US (occurrence: None)
  Receive Date: 20251202
  Receipt Date: 20251202
  Transmission Date: 20260118
  Serious: Yes (Death)
  Sender: FDA-CTU
  Company Number: None

PATIENT
  Age: 81 Year
  Sex: Female

DRUGS (1)
  1. LENALIDOMIDE [Suspect]
     Active Substance: LENALIDOMIDE
     Dosage: 15MG  ONCE EVERY OTHER DAY FOR 21 DAYS ON,  7 DAYS OFF?

REACTIONS (3)
  - Influenza [None]
  - Pneumonia [None]
  - Cardiac failure congestive [None]
